FAERS Safety Report 12809959 (Version 1)
Quarter: 2016Q4

REPORT INFORMATION
  Report Type: Other
  Country: DE (occurrence: DE)
  Receive Date: 20161005
  Receipt Date: 20161005
  Transmission Date: 20170207
  Serious: Yes (Other)
  Sender: FDA-Public Use
  Company Number: DE-LUPIN PHARMACEUTICALS INC.-2016-04414

PATIENT
  Sex: Male

DRUGS (2)
  1. TRAMADOL. [Suspect]
     Active Substance: TRAMADOL
     Dosage: INCREASED DAILY DOSE OF 450 MG BY ONE THIRD
     Route: 065
  2. TRAMADOL. [Suspect]
     Active Substance: TRAMADOL
     Indication: BACK PAIN
     Dosage: 450 MG
     Route: 065

REACTIONS (4)
  - Generalised tonic-clonic seizure [Unknown]
  - Intentional product misuse [Unknown]
  - Intentional overdose [Unknown]
  - Road traffic accident [Unknown]
